FAERS Safety Report 8538872-1 (Version None)
Quarter: 2012Q3

REPORT INFORMATION
  Report Type: 
  Country: None (occurrence: None)
  Receive Date: 20120726
  Receipt Date: 20120720
  Transmission Date: 20120928
  Serious: Yes (Disabling)
  Sender: FDA-Public Use
  Company Number: US-SANOFI-AVENTIS-2012SA052030

PATIENT
  Age: 53 Year
  Sex: Male

DRUGS (1)
  1. LANTUS [Suspect]
     Dosage: 12 UNITS IN AM AND 12 UNITS IN PM DOSE:12 UNIT(S)
     Route: 058

REACTIONS (1)
  - AMPUTATION [None]
